FAERS Safety Report 8460553-3 (Version None)
Quarter: 2012Q2

REPORT INFORMATION
  Report Type: 
  Country: None (occurrence: None)
  Receive Date: 20120622
  Receipt Date: 20120503
  Transmission Date: 20120825
  Serious: No
  Sender: FDA-Public Use
  Company Number: US-ASTRAZENECA-2012SE14272

PATIENT
  Age: 691 Month
  Sex: Female
  Weight: 78 kg

DRUGS (19)
  1. LISINOPRIL [Concomitant]
     Route: 048
  2. RANEXA [Concomitant]
     Route: 048
  3. FLAXSEED [Concomitant]
     Dosage: DAILY
  4. FISH OIL [Concomitant]
     Route: 048
  5. BRILINTA [Suspect]
     Route: 048
     Dates: start: 20111201, end: 20120201
  6. NORVASC [Concomitant]
     Route: 048
  7. LISINOPRIL [Concomitant]
     Route: 048
  8. PRILOSEC [Concomitant]
     Route: 048
  9. BETA BLOCKER [Concomitant]
  10. ASPIRIN [Concomitant]
     Route: 048
  11. ZETIA [Concomitant]
     Route: 048
  12. ASPIRIN [Concomitant]
     Route: 048
  13. EFFIENT [Concomitant]
     Route: 048
  14. TICLOPIDINE HCL [Concomitant]
     Route: 048
  15. NITROGLYCERIN [Concomitant]
     Dosage: AT FIRST SIGN OF ATTACK, NOT MORE THAN 3 SPRAYS WITHIN 15 MINUTES
     Route: 060
  16. CRESTOR [Suspect]
     Route: 048
  17. METOPROLOL TARTRATE [Concomitant]
     Route: 048
  18. ACE INHIBITOR [Concomitant]
  19. WELCHOL [Concomitant]
     Route: 048

REACTIONS (6)
  - DYSPNOEA [None]
  - MALAISE [None]
  - CONTUSION [None]
  - CREATININE RENAL CLEARANCE INCREASED [None]
  - RENAL FAILURE [None]
  - DRUG HYPERSENSITIVITY [None]
